FAERS Safety Report 15756099 (Version 1)
Quarter: 2018Q4

REPORT INFORMATION
  Report Type: Spontaneous
  Country: CN (occurrence: CN)
  Receive Date: 20181224
  Receipt Date: 20181224
  Transmission Date: 20190205
  Serious: Yes (Other)
  Sender: FDA-Public Use
  Company Number: CN-ROCHE-2234921

PATIENT
  Age: 65 Year
  Sex: Female

DRUGS (11)
  1. AVASTIN [Suspect]
     Active Substance: BEVACIZUMAB
     Indication: ADENOCARCINOMA
  2. NEDAPLATIN [Concomitant]
     Active Substance: NEDAPLATIN
     Indication: METASTASIS
     Dosage: D1-3
     Route: 065
     Dates: start: 20180510
  3. AVASTIN [Suspect]
     Active Substance: BEVACIZUMAB
     Indication: METASTASIS
     Route: 065
     Dates: start: 20180510
  4. NEDAPLATIN [Concomitant]
     Active Substance: NEDAPLATIN
     Indication: ADENOCARCINOMA
  5. CARBOPLATIN. [Concomitant]
     Active Substance: CARBOPLATIN
     Route: 065
     Dates: start: 20170407
  6. AVASTIN [Suspect]
     Active Substance: BEVACIZUMAB
     Indication: METASTASES TO PLEURA
  7. PACLITAXEL. [Concomitant]
     Active Substance: PACLITAXEL
     Indication: METASTASIS
     Route: 065
     Dates: start: 20180510
  8. PACLITAXEL. [Concomitant]
     Active Substance: PACLITAXEL
     Indication: ADENOCARCINOMA
  9. PEMETREXED. [Concomitant]
     Active Substance: PEMETREXED
     Indication: CHEMOTHERAPY
     Route: 065
     Dates: start: 20170407
  10. PACLITAXEL. [Concomitant]
     Active Substance: PACLITAXEL
     Indication: METASTASES TO PLEURA
  11. NEDAPLATIN [Concomitant]
     Active Substance: NEDAPLATIN
     Indication: METASTASES TO PLEURA

REACTIONS (3)
  - Alopecia [Unknown]
  - Agranulocytosis [Unknown]
  - Fatigue [Unknown]
